FAERS Safety Report 5837397-1 (Version None)
Quarter: 2008Q3

REPORT INFORMATION
  Report Type: 
  Country: None (occurrence: None)
  Receive Date: 20080731
  Receipt Date: 20080611
  Transmission Date: 20090109
  Serious: No
  Sender: FDA-Public Use
  Company Number: US200806002863

PATIENT
  Sex: Male

DRUGS (8)
  1. BYETTA [Suspect]
  2. . [Concomitant]
  3. HUMALOG [Concomitant]
  4. PLAVIX [Concomitant]
  5. ACTOS [Concomitant]
  6. VYTORIN [Concomitant]
  7. NEXIUM [Concomitant]
  8. ANTI-DIABETICS [Concomitant]

REACTIONS (2)
  - GLYCOSYLATED HAEMOGLOBIN INCREASED [None]
  - NAUSEA [None]
